FAERS Safety Report 9178263 (Version 2)
Quarter: 2013Q1

REPORT INFORMATION
  Report Type: Spontaneous
  Country: US (occurrence: US)
  Receive Date: 20130321
  Receipt Date: 20130326
  Transmission Date: 20140127
  Serious: Yes (Other)
  Sender: FDA-Public Use
  Company Number: US-ELI_LILLY_AND_COMPANY-US201303004829

PATIENT
  Sex: Female

DRUGS (9)
  1. HUMALOG 25% LISPRO, 75% NPL [Suspect]
     Indication: DIABETES MELLITUS
     Dosage: 12 U, TID
     Dates: start: 20120603, end: 201209
  2. HUMALOG LISPRO [Suspect]
     Indication: DIABETES MELLITUS
     Dosage: 6 U, QID
     Dates: start: 201209
  3. LANTUS [Concomitant]
     Indication: DIABETES MELLITUS
     Dosage: UNK
  4. RILUTEK [Concomitant]
     Dosage: 50 MG, BID
  5. NEXIUM                                  /USA/ [Concomitant]
     Dosage: 40 MG, QD
  6. IRBESARTAN [Concomitant]
     Dosage: 150 MG, BID
  7. ATENOLOL [Concomitant]
     Dosage: 25 MG, QD
  8. BABY ASPIRIN [Concomitant]
     Dosage: UNK
  9. LORAZEPAM [Concomitant]
     Dosage: 2 MG, PRN

REACTIONS (5)
  - Amyotrophic lateral sclerosis [Not Recovered/Not Resolved]
  - Blood glucose decreased [Recovered/Resolved]
  - Blood glucose increased [Not Recovered/Not Resolved]
  - Glycosylated haemoglobin increased [Not Recovered/Not Resolved]
  - Blood glucose abnormal [Unknown]
